FAERS Safety Report 8501881-2 (Version None)
Quarter: 2012Q2

REPORT INFORMATION
  Report Type: 
  Country: None (occurrence: None)
  Receive Date: 20120405
  Receipt Date: 20110309
  Transmission Date: 20120825
  Serious: Yes (Other)
  Sender: FDA-Public Use
  Company Number: PHHY2011US19746

PATIENT
  Age: 74 Year
  Sex: Female

DRUGS (7)
  1. ALPRAZOLAM [Concomitant]
  2. RECLAST [Suspect]
     Dosage: 5 MG/100 ML FOR 15 MIN
     Dates: start: 20110127
  3. LEVOXYL [Suspect]
  4. LISINOPRIL [Concomitant]
  5. LEVOTHYROXINE SODIUM [Concomitant]
  6. OXYBUTYNIN [Concomitant]
  7. GABAPENTIN [Concomitant]

REACTIONS (1)
  - BLOOD PRESSURE INCREASED [None]
